FAERS Safety Report 4665816-5 (Version None)
Quarter: 2005Q2

REPORT INFORMATION
  Report Type: 
  Country: None (occurrence: None)
  Receive Date: 20050519
  Receipt Date: 20050221
  Transmission Date: 20051028
  Serious: No
  Sender: FDA-Public Use
  Company Number: US-GLAXOSMITHKLINE-A0546510A

PATIENT
  Age: 80 Year
  Sex: Male

DRUGS (14)
  1. AVODART [Suspect]
     Indication: BENIGN PROSTATIC HYPERPLASIA
     Dosage: .5MG PER DAY
     Route: 048
     Dates: start: 20041201, end: 20050207
  2. PLAVIX [Concomitant]
  3. CORDARONE [Concomitant]
  4. DRUG NAME UNKNOWN [Concomitant]
  5. FOLIC ACID [Concomitant]
  6. NIASPAN [Concomitant]
  7. PRAVACHOL [Concomitant]
  8. MULTI-VITAMIN [Concomitant]
  9. VITAMIN E [Concomitant]
  10. SELENIUM TRACE METAL ADDITIVE [Concomitant]
  11. ZINC [Concomitant]
  12. VIT C TAB [Concomitant]
  13. FOSAMAX [Concomitant]
  14. COREG [Concomitant]

REACTIONS (2)
  - DRUG INEFFECTIVE [None]
  - POLLAKIURIA [None]
